FAERS Safety Report 4969480-7 (Version None)
Quarter: 2006Q2

REPORT INFORMATION
  Report Type: 
  Country: None (occurrence: None)
  Receive Date: 20060406
  Receipt Date: 20060327
  Transmission Date: 20061013
  Serious: Yes (Death, Other)
  Sender: FDA-Public Use
  Company Number: 163-20785-06030112

PATIENT
  Age: 67 Year
  Sex: Male

DRUGS (9)
  1. THALOMID [Suspect]
     Indication: MULTIPLE MYELOMA
     Dosage: 200 MG, QD, ORAL
     Route: 048
     Dates: start: 20050301, end: 20060201
  2. DEXAMETHASONE [Suspect]
     Indication: MULTIPLE MYELOMA
     Dosage: 40 MG, QD ON DAYS 1-4 MONTLY, ORAL
     Route: 048
  3. CELEBREX [Concomitant]
  4. ATENOLOL [Concomitant]
  5. ENALAPRIL MALEATE [Concomitant]
  6. SIMVASTATIN (SIMASTATIN) [Concomitant]
  7. COUMADIN [Concomitant]
  8. MS CONTIN [Concomitant]
  9. FLEXERIL [Concomitant]

REACTIONS (3)
  - LYMPHOMA [None]
  - PNEUMONIA [None]
  - SUDDEN DEATH [None]
